FAERS Safety Report 7885515-6 (Version None)
Quarter: 2011Q4

REPORT INFORMATION
  Report Type: 
  Country: None (occurrence: None)
  Receive Date: 20111102
  Receipt Date: 20110623
  Transmission Date: 20120403
  Serious: Yes (Hospitalization)
  Sender: FDA-Public Use
  Company Number: US-AMGEN-USASP2011030017

PATIENT
  Age: 67 Year
  Sex: Female

DRUGS (2)
  1. ENBREL [Suspect]
     Indication: PSORIATIC ARTHROPATHY
     Dosage: 50 MG, 2 TIMES/WK
     Dates: start: 20100701, end: 20110501
  2. HUMIRA [Concomitant]

REACTIONS (4)
  - PSORIATIC ARTHROPATHY [None]
  - RASH PAPULAR [None]
  - CELLULITIS [None]
  - RASH PRURITIC [None]
